FAERS Safety Report 7674449-8 (Version None)
Quarter: 2011Q3

REPORT INFORMATION
  Report Type: 
  Country: None (occurrence: None)
  Receive Date: 20110810
  Receipt Date: 20110803
  Transmission Date: 20111222
  Serious: Yes (Hospitalization, Other)
  Sender: FDA-Public Use
  Company Number: US-RANBAXY-2010RR-40693

PATIENT
  Sex: Male

DRUGS (3)
  1. LEVAQUIN [Suspect]
     Route: 042
  2. LEVAQUIN [Suspect]
     Indication: PNEUMONIA
     Dosage: UNK
     Route: 048
     Dates: start: 20060322, end: 20060331
  3. CIPROFLOXACIN [Suspect]
     Indication: PNEUMONIA
     Dosage: UNK
     Route: 065
     Dates: start: 20060101

REACTIONS (6)
  - ROTATOR CUFF SYNDROME [None]
  - ARTHRALGIA [None]
  - JOINT DISLOCATION [None]
  - TENDON RUPTURE [None]
  - NEUROPATHY PERIPHERAL [None]
  - MYALGIA [None]
